FAERS Safety Report 10421106 (Version 1)
Quarter: 2014Q3

REPORT INFORMATION
  Report Type: Spontaneous
  Country: US (occurrence: None)
  Receive Date: 20140722
  Receipt Date: 20140722
  Transmission Date: 20150326
  Serious: No
  Sender: FDA-Public Use
  Company Number: 163-10004-14060082

PATIENT
  Age: 63 Year
  Sex: Male

DRUGS (4)
  1. CLOBETASOL (PROPIONATE) [Concomitant]
  2. OTEZLA [Suspect]
     Active Substance: APREMILAST
     Indication: PSORIATIC ARTHROPATHY
     Route: 048
     Dates: start: 20140513
  3. TRIAMCINOLONE/ACETONIDE (TRIAMCINOLONE ACETONIDE) [Concomitant]
  4. SORILUX (CALCIPOTRIOL) [Concomitant]

REACTIONS (5)
  - Depression [None]
  - Abdominal pain upper [None]
  - Diarrhoea [None]
  - Anxiety [None]
  - Nausea [None]
